FAERS Safety Report 25645931 (Version 1)
Quarter: 2025Q3

REPORT INFORMATION
  Report Type: Spontaneous
  Country: US (occurrence: US)
  Receive Date: 20250805
  Receipt Date: 20250805
  Transmission Date: 20251021
  Serious: Yes (Other)
  Sender: Kenvue
  Company Number: US-KENVUE-20250800339

PATIENT
  Age: 63 Year
  Sex: Female

DRUGS (1)
  1. BENADRYL [Suspect]
     Active Substance: DIPHENHYDRAMINE HYDROCHLORIDE
     Indication: Food allergy
     Route: 065
     Dates: start: 20250723, end: 202507

REACTIONS (8)
  - Product use in unapproved indication [Unknown]
  - Product administration error [Unknown]
  - Tongue discomfort [Recovering/Resolving]
  - Throat irritation [Recovering/Resolving]
  - Oral discomfort [Recovering/Resolving]
  - Swollen tongue [Recovering/Resolving]
  - Mouth swelling [Recovering/Resolving]
  - Pharyngeal swelling [Recovering/Resolving]

NARRATIVE: CASE EVENT DATE: 20250723
